FAERS Safety Report 19155946 (Version 1)
Quarter: 2021Q2

REPORT INFORMATION
  Report Type: Spontaneous
  Country: CN (occurrence: CN)
  Receive Date: 20210420
  Receipt Date: 20210420
  Transmission Date: 20210717
  Serious: Yes (Hospitalization)
  Sender: FDA-Public Use
  Company Number: CN-SPECGX-T202101022

PATIENT
  Age: 55 Year
  Sex: Male
  Weight: 83 kg

DRUGS (6)
  1. APATINIB MESYLATE [Suspect]
     Active Substance: APATINIB
     Indication: NEOPLASM
     Dosage: 80 MILLIGRAM, QD
     Route: 048
     Dates: start: 20210325, end: 20210403
  2. OXYCODONE/ACETAMINOPHEN [Suspect]
     Active Substance: ACETAMINOPHEN\OXYCODONE HYDROCHLORIDE
     Indication: ANALGESIC THERAPY
     Dosage: 330 MILLIGRAM, BID
     Route: 048
     Dates: start: 20210314
  3. BEVACIZUMAB. [Concomitant]
     Active Substance: BEVACIZUMAB
     Dosage: 0.8 GRAM
     Route: 042
     Dates: start: 20210322
  4. BEVACIZUMAB. [Concomitant]
     Active Substance: BEVACIZUMAB
     Indication: NEOPLASM
     Dosage: 0.8 GRAM
     Route: 042
     Dates: start: 20210122
  5. OXYCODONE/ACETAMINOPHEN [Suspect]
     Active Substance: ACETAMINOPHEN\OXYCODONE HYDROCHLORIDE
     Dosage: 330 MILLIGRAM, BID
     Route: 048
     Dates: start: 20210330, end: 20210331
  6. BEVACIZUMAB. [Concomitant]
     Active Substance: BEVACIZUMAB
     Dosage: 0.7 GRAM
     Route: 042
     Dates: start: 20210220

REACTIONS (12)
  - Dizziness [Recovering/Resolving]
  - Chest discomfort [Recovering/Resolving]
  - Productive cough [Recovering/Resolving]
  - Dyspnoea [Recovering/Resolving]
  - Gastrooesophageal reflux disease [Recovering/Resolving]
  - Rash [Recovering/Resolving]
  - Hiccups [Recovering/Resolving]
  - Headache [Recovering/Resolving]
  - Nausea [Recovering/Resolving]
  - Vomiting [Recovering/Resolving]
  - Fatigue [Recovering/Resolving]
  - Limb discomfort [Recovering/Resolving]

NARRATIVE: CASE EVENT DATE: 20210322
